FAERS Safety Report 15679046 (Version 2)
Quarter: 2018Q4

REPORT INFORMATION
  Report Type: Spontaneous
  Country: US (occurrence: US)
  Receive Date: 20181203
  Receipt Date: 20181212
  Transmission Date: 20190205
  Serious: No
  Sender: FDA-Public Use
  Company Number: US-TEVA-2018-US-983645

PATIENT
  Sex: Female

DRUGS (1)
  1. AJOVY [Suspect]
     Active Substance: FREMANEZUMAB-VFRM
     Indication: MIGRAINE
     Route: 058
     Dates: start: 20181003

REACTIONS (5)
  - Constipation [Recovered/Resolved]
  - Bowel movement irregularity [Not Recovered/Not Resolved]
  - Abdominal distension [Unknown]
  - Faeces hard [Unknown]
  - Migraine [Recovering/Resolving]
